FAERS Safety Report 21723456 (Version 2)
Quarter: 2022Q4

REPORT INFORMATION
  Report Type: Report from Study
  Country: JP (occurrence: JP)
  Receive Date: 20221213
  Receipt Date: 20221227
  Transmission Date: 20230112
  Serious: Yes (Other)
  Sender: FDA-Public Use
  Company Number: JP-TEVA-2022-JP-2835077

PATIENT

DRUGS (6)
  1. PREDNISOLONE [Suspect]
     Active Substance: PREDNISOLONE
     Indication: Cutaneous T-cell lymphoma
     Dosage: ADMINISTERED ON DAYS 1 TO 5.
     Route: 065
  2. PREDNISOLONE [Suspect]
     Active Substance: PREDNISOLONE
     Indication: Neoplasm
  3. ETOPOSIDE [Suspect]
     Active Substance: ETOPOSIDE
     Indication: Cutaneous T-cell lymphoma
     Dosage: ADMINISTERED ON DAYS 1 TO 5.
     Route: 065
  4. ETOPOSIDE [Suspect]
     Active Substance: ETOPOSIDE
     Indication: Neoplasm
  5. SOBUZOXANE [Suspect]
     Active Substance: SOBUZOXANE
     Indication: Cutaneous T-cell lymphoma
     Dosage: ADMINISTERED ON DAYS 1 TO 5.
     Route: 065
  6. SOBUZOXANE [Suspect]
     Active Substance: SOBUZOXANE
     Indication: Neoplasm

REACTIONS (1)
  - Leukopenia [Unknown]
